FAERS Safety Report 9262014 (Version 2)
Quarter: 2013Q2

REPORT INFORMATION
  Report Type: Spontaneous
  Country: CH (occurrence: CH)
  Receive Date: 20130429
  Receipt Date: 20130603
  Transmission Date: 20140414
  Serious: Yes (Hospitalization, Other)
  Sender: FDA-Public Use
  Company Number: CH-009507513-1304CHE015689

PATIENT
  Age: 59 Year
  Sex: Female

DRUGS (3)
  1. DIPROPHOS [Suspect]
     Dosage: STRENGTH: 5 MG/2 MG
  2. DIPROPHOS [Suspect]
     Indication: PERIARTHRITIS
     Dosage: 30 MG, ONCE, LOCAL INFILTRATION
     Dates: start: 20070416, end: 20070416
  3. LIDOCAINE [Concomitant]
     Indication: PERIARTHRITIS
     Dosage: UNK, ONCE, LOCAL INFILTRATION
     Dates: start: 20070416, end: 20070416

REACTIONS (3)
  - Osteonecrosis [Unknown]
  - Hip arthroplasty [Unknown]
  - Osteonecrosis [Unknown]
